FAERS Safety Report 7960958-0 (Version None)
Quarter: 2011Q4

REPORT INFORMATION
  Report Type: 
  Country: None (occurrence: None)
  Receive Date: 20111201
  Receipt Date: 20111201
  Transmission Date: 20120403
  Serious: Yes (Death)
  Sender: FDA-Public Use
  Company Number: None

PATIENT
  Age: 67 Year
  Sex: Female
  Weight: 78.0187 kg

DRUGS (2)
  1. SERTRALINE HYDROCHLORIDE [Suspect]
     Dosage: 100 MG 2 QD PO
     Route: 048
     Dates: start: 20100423, end: 20110731
  2. ABILIFY [Suspect]
     Dosage: 5MG 1 QD PO
     Route: 048
     Dates: start: 20110103, end: 20110731

REACTIONS (1)
  - CARDIAC ARREST [None]
